FAERS Safety Report 18592078 (Version 2)
Quarter: 2020Q4

REPORT INFORMATION
  Report Type: Report from Study
  Country: US (occurrence: US)
  Receive Date: 20201208
  Receipt Date: 20201209
  Transmission Date: 20210114
  Serious: No
  Sender: FDA-Public Use
  Company Number: NVSC2020US326335

PATIENT
  Age: 75 Year
  Sex: Female

DRUGS (2)
  1. RYDAPT [Suspect]
     Active Substance: MIDOSTAURIN
     Route: 065
  2. RYDAPT [Suspect]
     Active Substance: MIDOSTAURIN
     Route: 065

REACTIONS (1)
  - Treatment failure [Unknown]
